FAERS Safety Report 15247881 (Version 1)
Quarter: 2018Q3

REPORT INFORMATION
  Report Type: Spontaneous
  Country: GB (occurrence: GB)
  Receive Date: 20180807
  Receipt Date: 20180807
  Transmission Date: 20181010
  Serious: Yes (Other)
  Sender: FDA-Public Use
  Company Number: GB-TEVA-2018-GB-935989

PATIENT

DRUGS (1)
  1. TERBINAFINE 250MG TABLETS [Suspect]
     Active Substance: TERBINAFINE
     Indication: PRODUCT USED FOR UNKNOWN INDICATION
     Dosage: 250 MG, UNK
     Route: 048

REACTIONS (5)
  - Skin exfoliation [Unknown]
  - Liver function test increased [Unknown]
  - Systemic lupus erythematosus [Unknown]
  - Ocular hyperaemia [Unknown]
  - Rash generalised [Unknown]
